FAERS Safety Report 14599612 (Version 3)
Quarter: 2018Q2

REPORT INFORMATION
  Report Type: Report from Study
  Country: US (occurrence: US)
  Receive Date: 20180305
  Receipt Date: 20180412
  Transmission Date: 20180711
  Serious: Yes (Other)
  Sender: FDA-Public Use
  Company Number: US-ASTELLAS-2018US010620

PATIENT
  Age: 78 Year
  Sex: Male

DRUGS (2)
  1. NORCO [Suspect]
     Active Substance: ACETAMINOPHEN\HYDROCODONE BITARTRATE
     Indication: CHEST PAIN
     Route: 048
  2. ENZALUTAMIDE [Suspect]
     Active Substance: ENZALUTAMIDE
     Indication: PROSTATE CANCER METASTATIC
     Route: 048
     Dates: start: 20180221, end: 20180228

REACTIONS (14)
  - Pallor [Unknown]
  - Dyspnoea [Unknown]
  - Confusional state [Unknown]
  - Pain in extremity [Unknown]
  - Memory impairment [Unknown]
  - Dizziness [Unknown]
  - Decreased appetite [Unknown]
  - Treatment noncompliance [Unknown]
  - Pruritus [Unknown]
  - Muscle spasms [Unknown]
  - Chest pain [Recovered/Resolved]
  - Vomiting [Unknown]
  - Rash [Unknown]
  - Feeling abnormal [Recovered/Resolved]

NARRATIVE: CASE EVENT DATE: 20180222
